FAERS Safety Report 9369765 (Version 2)
Quarter: 2013Q3

REPORT INFORMATION
  Report Type: Spontaneous
  Country: US (occurrence: US)
  Receive Date: 20130626
  Receipt Date: 20130813
  Transmission Date: 20140515
  Serious: Yes (Hospitalization)
  Sender: FDA-Public Use
  Company Number: US-ASTELLAS-2013US006562

PATIENT
  Age: 44 Year
  Sex: Female
  Weight: 95 kg

DRUGS (4)
  1. PROGRAF [Suspect]
     Indication: HEART TRANSPLANT
     Dosage: 2 MG, BID
     Route: 048
     Dates: start: 20100716
  2. SYNTHROID [Concomitant]
     Indication: THYROID DISORDER
     Dosage: 88 MG, UID/QD
     Route: 048
     Dates: start: 20101016
  3. MEDROL                             /00049601/ [Concomitant]
     Indication: PRODUCT USED FOR UNKNOWN INDICATION
     Dosage: 1000 MG, BID
     Route: 048
     Dates: start: 20101016
  4. PRAVASTATIN [Concomitant]
     Indication: BLOOD PRESSURE
     Dosage: 20 MG, UID/QD
     Route: 048
     Dates: start: 20101016

REACTIONS (1)
  - Intervertebral disc degeneration [Recovered/Resolved]
